FAERS Safety Report 8093299-4 (Version None)
Quarter: 2012Q1

REPORT INFORMATION
  Report Type: 
  Country: None (occurrence: None)
  Receive Date: 20120128
  Receipt Date: 20110906
  Transmission Date: 20120608
  Serious: No
  Sender: FDA-Public Use
  Company Number: US-ABBOTT-11P-163-0841749-00

PATIENT
  Sex: Male
  Weight: 72.64 kg

DRUGS (3)
  1. NAPROXEN (ALEVE) [Concomitant]
     Indication: ARTHRALGIA
     Dates: start: 20060101
  2. HUMIRA [Suspect]
     Indication: PSORIATIC ARTHROPATHY
     Route: 058
     Dates: start: 20110704, end: 20110815
  3. SIMCOR [Concomitant]
     Indication: BLOOD CHOLESTEROL INCREASED
     Dates: start: 20100601

REACTIONS (2)
  - URTICARIA [None]
  - PRURITUS [None]
